FAERS Safety Report 18847608 (Version 2)
Quarter: 2021Q1

REPORT INFORMATION
  Report Type: Spontaneous
  Country: US (occurrence: US)
  Receive Date: 20210204
  Receipt Date: 20210326
  Transmission Date: 20210419
  Serious: Yes (Hospitalization)
  Sender: FDA-Public Use
  Company Number: US-VERTEX PHARMACEUTICALS-2021-001828

PATIENT
  Age: 9 Year
  Sex: Female

DRUGS (1)
  1. SYMDEKO [Suspect]
     Active Substance: IVACAFTOR\TEZACAFTOR
     Indication: CYSTIC FIBROSIS
     Dosage: 50MG TEZACAFTOR/75MG IVACAFTOR AND 75MG IVACAFTOR
     Route: 048
     Dates: start: 20191030

REACTIONS (1)
  - Infective pulmonary exacerbation of cystic fibrosis [Recovering/Resolving]

NARRATIVE: CASE EVENT DATE: 202001
